FAERS Safety Report 9681229 (Version 1)
Quarter: 2013Q4

REPORT INFORMATION
  Report Type: Spontaneous
  Country: FR (occurrence: FR)
  Receive Date: 20131111
  Receipt Date: 20131111
  Transmission Date: 20140711
  Serious: Yes (Death, Hospitalization)
  Sender: FDA-Public Use
  Company Number: FR-TEVA-441568ISR

PATIENT
  Age: 67 Year
  Sex: Male

DRUGS (6)
  1. COTRIMOXAZOLE RATIOPHARM 800 MG/160 MG [Suspect]
     Indication: PROSTATITIS
     Dosage: 3 DOSAGE FORMS DAILY;
     Route: 048
     Dates: start: 20130607
  2. ISOPTINE LP 240 MG [Suspect]
     Dosage: 240 MILLIGRAM DAILY;
     Route: 048
  3. MICARDISPLUS 80 MG/12.5 MG [Interacting]
     Dosage: 1 DOSAGE FORMS DAILY; ON MORNING
     Route: 048
  4. ALLOPURINOL 200 MG [Concomitant]
     Indication: GOUT
     Dosage: 200 MILLIGRAM DAILY;
     Route: 048
  5. KARDEGIC 75 MG [Concomitant]
     Dosage: 75 MILLIGRAM DAILY;
     Route: 048
  6. ATORVASTATIN 80 MG [Concomitant]
     Dosage: 80 MILLIGRAM DAILY;
     Route: 048

REACTIONS (4)
  - Hyperkalaemia [Fatal]
  - Cardiac arrest [Fatal]
  - Renal failure acute [Fatal]
  - Drug interaction [Unknown]
